FAERS Safety Report 20671771 (Version 1)
Quarter: 2022Q2

REPORT INFORMATION
  Report Type: Report from Study
  Country: AR (occurrence: AR)
  Receive Date: 20220405
  Receipt Date: 20220405
  Transmission Date: 20220721
  Serious: Yes (Other)
  Sender: FDA-Public Use
  Company Number: AR-ABBVIE-22K-007-4261238-00

PATIENT
  Age: 57 Year
  Sex: Female

DRUGS (2)
  1. HUMIRA [Suspect]
     Active Substance: ADALIMUMAB
     Indication: Psoriasis
     Route: 058
     Dates: start: 20150408, end: 202201
  2. HUMIRA [Suspect]
     Active Substance: ADALIMUMAB
     Route: 058
     Dates: start: 2022, end: 202202

REACTIONS (13)
  - Intervertebral disc protrusion [Recovering/Resolving]
  - Exposure to SARS-CoV-2 [Unknown]
  - Asymptomatic COVID-19 [Recovered/Resolved]
  - Back pain [Unknown]
  - Arthralgia [Unknown]
  - Groin pain [Unknown]
  - Post procedural swelling [Unknown]
  - Influenza [Recovered/Resolved]
  - Pain [Recovered/Resolved]
  - Procedural pain [Unknown]
  - Dermatitis allergic [Recovered/Resolved]
  - Dermatitis allergic [Recovered/Resolved]
  - Post procedural pruritus [Recovered/Resolved]

NARRATIVE: CASE EVENT DATE: 20211201
